FAERS Safety Report 19918992 (Version 5)
Quarter: 2021Q4

REPORT INFORMATION
  Report Type: Spontaneous
  Country: TR (occurrence: TR)
  Receive Date: 20211005
  Receipt Date: 20211116
  Transmission Date: 20220304
  Serious: Yes (Hospitalization)
  Sender: FDA-Public Use
  Company Number: TR-CELGENE-TUR-20210907399

PATIENT
  Age: 85 Year
  Sex: Female
  Weight: 77 kg

DRUGS (7)
  1. AZACITIDINE [Suspect]
     Active Substance: AZACITIDINE
     Indication: Myelodysplastic syndrome
     Dosage: 7 DAYS WITHIN THE FIRST 9 DAYS OF EACH 28 DAY CYCLE
     Route: 058
     Dates: start: 20210906
  2. VENETOCLAX [Suspect]
     Active Substance: VENETOCLAX
     Indication: Myelodysplastic syndrome
     Route: 048
     Dates: start: 20210906
  3. SILODOSIN [Concomitant]
     Active Substance: SILODOSIN
     Indication: Benign prostatic hyperplasia
     Route: 048
  4. AVODART [Concomitant]
     Active Substance: DUTASTERIDE
     Indication: Benign prostatic hyperplasia
     Route: 048
  5. LEVONIDIN [Concomitant]
     Indication: Anti-infective therapy
     Dosage: 500 MILLIGRAM
     Route: 048
     Dates: start: 20210906
  6. FILGRASTIM [Concomitant]
     Active Substance: FILGRASTIM
     Indication: Neutropenia
     Dosage: 48 MIU
     Route: 057
     Dates: start: 20210915, end: 20210915
  7. FILGRASTIM [Concomitant]
     Active Substance: FILGRASTIM
     Dosage: 30 MIU
     Route: 057
     Dates: start: 20210918

REACTIONS (2)
  - Epistaxis [Recovered/Resolved]
  - Anaemia [Not Recovered/Not Resolved]

NARRATIVE: CASE EVENT DATE: 20210918
